FAERS Safety Report 14413125 (Version 1)
Quarter: 2018Q1

REPORT INFORMATION
  Report Type: Spontaneous
  Country: PT (occurrence: PT)
  Receive Date: 20180119
  Receipt Date: 20180119
  Transmission Date: 20180509
  Serious: Yes (Other)
  Sender: FDA-Public Use
  Company Number: PT-PFIZER INC-2018025784

PATIENT
  Age: 35 Year
  Sex: Male

DRUGS (2)
  1. LEVETIRACETAM. [Suspect]
     Active Substance: LEVETIRACETAM
     Indication: EPILEPSY
     Dosage: UNK
  2. VALPROIC ACID. [Suspect]
     Active Substance: VALPROIC ACID
     Indication: EPILEPSY
     Dosage: UNK

REACTIONS (1)
  - Treatment noncompliance [Unknown]
